FAERS Safety Report 7559449-0 (Version None)
Quarter: 2011Q2

REPORT INFORMATION
  Report Type: 
  Country: None (occurrence: None)
  Receive Date: 20110621
  Receipt Date: 20110613
  Transmission Date: 20111010
  Serious: Yes (Death)
  Sender: FDA-Public Use
  Company Number: MX-BRISTOL-MYERS SQUIBB COMPANY-14710164

PATIENT
  Age: 85 Year
  Sex: Female

DRUGS (9)
  1. CAPTOPRIL [Concomitant]
     Dosage: TABLET
     Dates: start: 20080826, end: 20090116
  2. FUROSEMIDE [Concomitant]
     Dosage: 40MG TABLET
     Dates: start: 20090116, end: 20090718
  3. PLACEBO [Suspect]
     Indication: THROMBOSIS PROPHYLAXIS
     Route: 048
     Dates: start: 20081006, end: 20090717
  4. METOPROLOL TARTRATE [Concomitant]
     Dosage: 1DF: 100MG TABLET(HALF TABLET-BID)
     Dates: start: 20080826, end: 20090116
  5. WARFARIN SODIUM [Suspect]
     Indication: THROMBOSIS PROPHYLAXIS
     Route: 048
     Dates: start: 20081006, end: 20090717
  6. LYSINE CLONIXINATE [Concomitant]
     Dosage: 125MG TAB(TID, IF NECESSARY(PAIN IN KNEES))
     Dates: start: 20081212, end: 20090718
  7. ASPIRIN [Concomitant]
     Indication: HYPERTENSION
     Dosage: 300MG TABLET(HALF TAB)
     Route: 048
     Dates: start: 20081212, end: 20090718
  8. DIGOXIN [Concomitant]
     Indication: ATRIAL FIBRILLATION
     Dosage: 0.25MG TABLET(HALF TABLET)
     Route: 048
     Dates: start: 20081106, end: 20090718
  9. ENALAPRIL MALEATE [Concomitant]
     Indication: HYPERTENSION
     Dosage: 10MG TABLET(BID)
     Route: 048
     Dates: start: 20090116, end: 20090718

REACTIONS (1)
  - SUDDEN DEATH [None]
